FAERS Safety Report 10134571 (Version 3)
Quarter: 2014Q3

REPORT INFORMATION
  Report Type: Spontaneous
  Country: FR (occurrence: FR)
  Receive Date: 20140428
  Receipt Date: 20140919
  Transmission Date: 20150326
  Serious: Yes (Hospitalization)
  Sender: FDA-Public Use
  Company Number: FR-PFIZER INC-2014114648

PATIENT
  Age: 74 Year
  Sex: Male
  Weight: 110 kg

DRUGS (7)
  1. JANUMET [Concomitant]
     Active Substance: METFORMIN HYDROCHLORIDE\SITAGLIPTIN PHOSPHATE
  2. TAHOR [Concomitant]
     Active Substance: ATORVASTATIN CALCIUM
  3. LANTUS [Concomitant]
     Active Substance: INSULIN GLARGINE
  4. ADENURIC [Concomitant]
     Active Substance: FEBUXOSTAT
  5. LYRICA [Suspect]
     Active Substance: PREGABALIN
     Indication: NEURALGIA
     Dosage: 75 MG, 2X/DAY
  6. PERINDOPRIL [Concomitant]
     Active Substance: PERINDOPRIL
  7. LYRICA [Suspect]
     Active Substance: PREGABALIN
     Dosage: 150 MG, 2X/DAY
     Dates: start: 20140201, end: 20140311

REACTIONS (1)
  - Cerebellar syndrome [Recovered/Resolved]

NARRATIVE: CASE EVENT DATE: 2014
